FAERS Safety Report 5875381-2 (Version None)
Quarter: 2008Q3

REPORT INFORMATION
  Report Type: 
  Country: None (occurrence: None)
  Receive Date: 20080904
  Receipt Date: 20080826
  Transmission Date: 20090109
  Serious: Yes (Other)
  Sender: FDA-Public Use
  Company Number: 2008SP016505

PATIENT
  Sex: Female
  Weight: 70.3075 kg

DRUGS (9)
  1. MIRALAX [Suspect]
     Indication: CONSTIPATION
     Dosage: 1 DF; BID; PO
     Route: 048
     Dates: start: 20070101
  2. MIRALAX [Suspect]
     Indication: INTESTINAL OBSTRUCTION
     Dosage: 1 DF; BID; PO
     Route: 048
     Dates: start: 20070101
  3. BACLOFEN [Concomitant]
  4. KLONOPIN [Concomitant]
  5. CA [Concomitant]
  6. VITAMIN TAB [Concomitant]
  7. FLAX SEED OIL [Concomitant]
  8. OLIVE LEAF [Concomitant]
  9. PROBIOTIC FEMINA [Concomitant]

REACTIONS (7)
  - BLOOD ALBUMIN INCREASED [None]
  - BLOOD ALKALINE PHOSPHATASE INCREASED [None]
  - BLOOD PRESSURE INCREASED [None]
  - DRUG INEFFECTIVE [None]
  - LIVER FUNCTION TEST ABNORMAL [None]
  - RENAL FUNCTION TEST ABNORMAL [None]
  - SWELLING [None]
